FAERS Safety Report 5483656-4 (Version None)
Quarter: 2007Q4

REPORT INFORMATION
  Report Type: 
  Country: None (occurrence: None)
  Receive Date: 20071012
  Receipt Date: 20071004
  Transmission Date: 20080405
  Serious: Yes (Hospitalization)
  Sender: FDA-Public Use
  Company Number: US-ELI_LILLY_AND_COMPANY-US200710001301

PATIENT
  Sex: Female
  Weight: 58.956 kg

DRUGS (4)
  1. BYETTA [Suspect]
     Indication: TYPE 2 DIABETES MELLITUS
     Dosage: 5 UG, 2/D
     Route: 058
     Dates: start: 20070301
  2. BYETTA [Suspect]
     Dosage: 10 UG, 2/D
     Route: 058
     Dates: start: 20070401
  3. METFORMIN HCL [Concomitant]
     Indication: DIABETES MELLITUS
  4. LANTUS [Concomitant]
     Dosage: 34 U, UNKNOWN
     Dates: start: 20070801

REACTIONS (5)
  - DECREASED APPETITE [None]
  - EARLY SATIETY [None]
  - FALL [None]
  - TIBIA FRACTURE [None]
  - WEIGHT DECREASED [None]
